FAERS Safety Report 8559870-8 (Version None)
Quarter: 2012Q3

REPORT INFORMATION
  Report Type: 
  Country: None (occurrence: None)
  Receive Date: 20120802
  Receipt Date: 20120730
  Transmission Date: 20120928
  Serious: Yes (Hospitalization)
  Sender: FDA-Public Use
  Company Number: CL-PFIZER INC-2012186526

PATIENT
  Age: 21 Year
  Sex: Female

DRUGS (2)
  1. ZIPRASIDONE HYDROCHLORIDE [Suspect]
     Dosage: UNK
     Route: 048
     Dates: start: 20120701, end: 20120701
  2. VALPROATE SODIUM [Concomitant]
     Dosage: UNK

REACTIONS (1)
  - GASTROINTESTINAL DISORDER [None]
